FAERS Safety Report 25368869 (Version 1)
Quarter: 2025Q2

REPORT INFORMATION
  Report Type: Report from Study
  Country: BR (occurrence: BR)
  Receive Date: 20250528
  Receipt Date: 20250528
  Transmission Date: 20250717
  Serious: Yes (Hospitalization, Other)
  Sender: TAKEDA
  Company Number: BR-TAKEDA-2025TUS049613

PATIENT
  Sex: Female

DRUGS (1)
  1. HUMAN IMMUNOGLOBULIN G\HYALURONIDASE RECOMBINANT HUMAN [Suspect]
     Active Substance: HUMAN IMMUNOGLOBULIN G\HYALURONIDASE (HUMAN RECOMBINANT)
     Indication: Primary immunodeficiency syndrome
     Dosage: 30 GRAM, Q3WEEKS

REACTIONS (6)
  - Enterocolitis [Unknown]
  - Inflammatory bowel disease [Unknown]
  - Loss of personal independence in daily activities [Unknown]
  - Weight decreased [Unknown]
  - Enteritis [Unknown]
  - Microvillous inclusion disease [Unknown]

NARRATIVE: CASE EVENT DATE: 20210101
